FAERS Safety Report 19466369 (Version 1)
Quarter: 2021Q2

REPORT INFORMATION
  Report Type: Report from Study
  Country: None (occurrence: CA)
  Receive Date: 20210627
  Receipt Date: 20210627
  Transmission Date: 20210717
  Serious: Yes (Hospitalization)
  Sender: FDA-Public Use
  Company Number: CA-ABBVIE-21K-028-3965706-00

PATIENT
  Sex: Female

DRUGS (1)
  1. RINVOQ [Suspect]
     Active Substance: UPADACITINIB
     Indication: RHEUMATOID ARTHRITIS
     Route: 048
     Dates: start: 20201209

REACTIONS (5)
  - Hip fracture [Recovering/Resolving]
  - Fall [Unknown]
  - Wrist fracture [Recovering/Resolving]
  - Joint injury [Recovered/Resolved]
  - Arthralgia [Not Recovered/Not Resolved]
